FAERS Safety Report 9319075 (Version 1)
Quarter: 2013Q2

REPORT INFORMATION
  Report Type: Spontaneous
  Country: US (occurrence: US)
  Receive Date: 20130530
  Receipt Date: 20130530
  Transmission Date: 20140414
  Serious: No
  Sender: FDA-Public Use
  Company Number: US-NOVEN-13US006037

PATIENT
  Age: 6 Year
  Sex: Male
  Weight: 23.13 kg

DRUGS (2)
  1. DAYTRANA [Suspect]
     Indication: ATTENTION DEFICIT/HYPERACTIVITY DISORDER
     Dosage: 15 MG ON SCHOOL DAYS
     Route: 062
     Dates: start: 201209
  2. KAPVAY [Concomitant]
     Indication: ATTENTION DEFICIT/HYPERACTIVITY DISORDER
     Dosage: 0.2 UNK, UNK
     Route: 048

REACTIONS (2)
  - Incorrect drug administration duration [Recovered/Resolved]
  - No adverse event [None]
